FAERS Safety Report 8438842-8 (Version None)
Quarter: 2012Q2

REPORT INFORMATION
  Report Type: 
  Country: None (occurrence: None)
  Receive Date: 20120615
  Receipt Date: 20120606
  Transmission Date: 20120825
  Serious: Yes (Other)
  Sender: FDA-Public Use
  Company Number: BR-US-EMD SERONO, INC.-7136946

PATIENT
  Sex: Female

DRUGS (5)
  1. REBIF [Suspect]
     Indication: RELAPSING-REMITTING MULTIPLE SCLEROSIS
     Dates: start: 20110111, end: 20110715
  2. REBIF [Suspect]
     Dates: start: 20110715, end: 20111114
  3. REBIF [Suspect]
     Dates: start: 20111116
  4. CICLO 21 [Concomitant]
     Indication: PRODUCT USED FOR UNKNOWN INDICATION
  5. LOVAZA [Concomitant]
     Indication: PRODUCT USED FOR UNKNOWN INDICATION

REACTIONS (9)
  - DYSPNOEA [None]
  - CHEST PAIN [None]
  - LABORATORY TEST ABNORMAL [None]
  - HEADACHE [None]
  - INAPPROPRIATE SCHEDULE OF DRUG ADMINISTRATION [None]
  - FEELING COLD [None]
  - HYPERTENSION [None]
  - ARTHRALGIA [None]
  - ANGINA PECTORIS [None]
